FAERS Safety Report 18743047 (Version 1)
Quarter: 2021Q1

REPORT INFORMATION
  Report Type: Spontaneous
  Country: CA (occurrence: CA)
  Receive Date: 20210115
  Receipt Date: 20210115
  Transmission Date: 20210419
  Serious: Yes (Other)
  Sender: FDA-Public Use
  Company Number: CA-TEVA-2021-CA-1866953

PATIENT
  Age: 72 Year
  Sex: Female

DRUGS (2)
  1. MORPHINE [Suspect]
     Active Substance: MORPHINE
     Route: 048
  2. MORPHINE [Suspect]
     Active Substance: MORPHINE
     Route: 040

REACTIONS (4)
  - Documented hypersensitivity to administered product [Unknown]
  - Dyspnoea [Unknown]
  - Product dispensing error [Unknown]
  - Somnolence [Unknown]
